FAERS Safety Report 6699506-4 (Version None)
Quarter: 2010Q2

REPORT INFORMATION
  Report Type: 
  Country: None (occurrence: None)
  Receive Date: 20100427
  Receipt Date: 20100427
  Transmission Date: 20101027
  Serious: No
  Sender: FDA-Public Use
  Company Number: None

PATIENT
  Sex: Female

DRUGS (1)
  1. CIMZIA [Suspect]
     Dosage: 400MG EVERY 4 WEEKS SQ
     Route: 058
     Dates: start: 20100304, end: 20100401

REACTIONS (1)
  - HYPERTENSION [None]
